FAERS Safety Report 22271615 (Version 4)
Quarter: 2023Q2

REPORT INFORMATION
  Report Type: Spontaneous
  Country: US (occurrence: US)
  Receive Date: 20230502
  Receipt Date: 20230519
  Transmission Date: 20230722
  Serious: Yes (Other)
  Sender: FDA-Public Use
  Company Number: US-AMGEN-USASP2023071515

PATIENT
  Sex: Female

DRUGS (1)
  1. PROLIA [Suspect]
     Active Substance: DENOSUMAB
     Indication: Product used for unknown indication
     Dosage: 60 MILLIGRAM, Q6MO
     Route: 058
     Dates: start: 2018

REACTIONS (5)
  - Atrioventricular block [Unknown]
  - Cardiac disorder [Unknown]
  - Tooth disorder [Unknown]
  - Cardiac stress test abnormal [Unknown]
  - Pollakiuria [Unknown]
